FAERS Safety Report 6526444-X (Version None)
Quarter: 2009Q4

REPORT INFORMATION
  Report Type: 
  Country: None (occurrence: None)
  Receive Date: 20091223
  Receipt Date: 20091208
  Transmission Date: 20100525
  Serious: Yes (Hospitalization)
  Sender: FDA-Public Use
  Company Number: APP200900922

PATIENT
  Sex: Female

DRUGS (5)
  1. CARBOPLATIN [Suspect]
     Indication: BREAST CANCER
     Dosage: AUC OF 5; INTRAVENOUS
     Route: 042
     Dates: start: 20091201
  2. TAXOTERE [Suspect]
     Indication: BREAST CANCER
     Dates: start: 20091201
  3. HERCEPTIN [Suspect]
     Indication: BREAST CANCER
     Dates: start: 20091201
  4. DEXAMETHASONE TAB [Concomitant]
  5. ZOFRAN [Concomitant]

REACTIONS (1)
  - URINARY TRACT INFECTION [None]
